FAERS Safety Report 9015946 (Version 3)
Quarter: 2013Q3

REPORT INFORMATION
  Report Type: Report from Study
  Country: BR (occurrence: BR)
  Receive Date: 20130116
  Receipt Date: 20130806
  Transmission Date: 20140515
  Serious: Yes (Hospitalization, Other)
  Sender: FDA-Public Use
  Company Number: BR-ROCHE-1142516

PATIENT
  Sex: Female
  Weight: 48 kg

DRUGS (3)
  1. INTERFERON ALFA-2A [Suspect]
     Indication: HEPATITIS C
     Route: 042
     Dates: start: 201206, end: 201207
  2. RIBAVIRIN [Suspect]
     Indication: HEPATITIS C
     Route: 065
     Dates: end: 201207
  3. EUTHYROX [Concomitant]
     Indication: THYROID DISORDER
     Route: 065

REACTIONS (20)
  - Vomiting [Unknown]
  - Aphagia [Recovered/Resolved]
  - Dry skin [Recovered/Resolved]
  - Pain [Recovered/Resolved]
  - Headache [Recovered/Resolved]
  - Vision blurred [Recovered/Resolved]
  - Aggression [Recovered/Resolved]
  - Depression [Recovered/Resolved]
  - Parosmia [Not Recovered/Not Resolved]
  - Feeling hot [Recovered/Resolved]
  - Feeling hot [Recovered/Resolved]
  - Fatigue [Recovered/Resolved with Sequelae]
  - Nausea [Recovered/Resolved]
  - Asthenia [Unknown]
  - Thrombocytopenia [Recovered/Resolved]
  - Weight decreased [Recovered/Resolved]
  - Trichorrhexis [Not Recovered/Not Resolved]
  - Alopecia [Recovered/Resolved]
  - Malaise [Unknown]
  - Hair disorder [Recovered/Resolved]
